FAERS Safety Report 9492662 (Version 1)
Quarter: 2013Q3

REPORT INFORMATION
  Report Type: Spontaneous
  Country: US (occurrence: US)
  Receive Date: 20130830
  Receipt Date: 20130830
  Transmission Date: 20140515
  Serious: Yes (Other)
  Sender: FDA-Public Use
  Company Number: CHPA2013US013376

PATIENT
  Age: 65 Year
  Sex: Female

DRUGS (4)
  1. EXCEDRIN EXTRA STRENGTH [Suspect]
     Indication: SINUS HEADACHE
     Dosage: 2 DF, BID
     Route: 048
     Dates: start: 1995, end: 2012
  2. EXCEDRIN SINUS HEADACHE [Suspect]
     Indication: SINUS HEADACHE
     Dosage: 2 DF, PRN
     Dates: end: 2012
  3. PLAVIX [Concomitant]
     Dosage: UNK, UNK
  4. ANTIHYPERTENSIVE DRUGS [Concomitant]
     Indication: HYPERTENSION
     Dosage: UNK, UNK

REACTIONS (5)
  - Cerebrovascular accident [Recovered/Resolved]
  - Memory impairment [Recovered/Resolved]
  - Hypertension [Not Recovered/Not Resolved]
  - Sinusitis [Recovered/Resolved]
  - Off label use [Unknown]
